FAERS Safety Report 4674935-9 (Version None)
Quarter: 2005Q2

REPORT INFORMATION
  Report Type: 
  Country: None (occurrence: None)
  Receive Date: 20050525
  Receipt Date: 20041116
  Transmission Date: 20051028
  Serious: No
  Sender: FDA-Public Use
  Company Number: 9319

PATIENT
  Age: 57 Year
  Sex: Female
  Weight: 66.2252 kg

DRUGS (8)
  1. CARBOPLATIN [Suspect]
     Indication: OVARIAN CANCER
     Dosage: 580 MG PER_CYCLE IV
     Route: 042
     Dates: start: 20041027
  2. TAXOL [Concomitant]
  3. DEXAMETHASONE [Concomitant]
  4. FAMOTIDINE [Concomitant]
  5. ACETAMINOPHEN [Concomitant]
  6. ONDANSETRON [Concomitant]
  7. DIPHENHYDRAMINE HCL [Concomitant]
  8. PACLITAXEL [Concomitant]

REACTIONS (2)
  - ERYTHEMA [None]
  - HYPERHIDROSIS [None]
